FAERS Safety Report 9259177 (Version 1)
Quarter: 2013Q2

REPORT INFORMATION
  Report Type: Report from Study
  Country: US (occurrence: US)
  Receive Date: 20130426
  Receipt Date: 20130426
  Transmission Date: 20140414
  Serious: Yes (Hospitalization)
  Sender: FDA-Public Use
  Company Number: US-US-EMD SERONO, INC.-7207101

PATIENT
  Age: 43 Year
  Sex: Female
  Weight: 84 kg

DRUGS (4)
  1. REBIF [Suspect]
     Indication: MULTIPLE SCLEROSIS
     Route: 058
     Dates: start: 20110818
  2. REBIF [Suspect]
     Route: 058
     Dates: end: 20130413
  3. ZOLOFT                             /01011401/ [Concomitant]
     Indication: DEPRESSION
  4. LIDODERM [Concomitant]
     Indication: PRODUCT USED FOR UNKNOWN INDICATION

REACTIONS (4)
  - Urinary tract infection [Recovered/Resolved]
  - Fall [Recovered/Resolved]
  - Muscle rigidity [Recovered/Resolved]
  - Headache [Recovered/Resolved]
